FAERS Safety Report 17787899 (Version 3)
Quarter: 2020Q2

REPORT INFORMATION
  Report Type: Spontaneous
  Country: US (occurrence: US)
  Receive Date: 20200515
  Receipt Date: 20200616
  Transmission Date: 20200714
  Serious: No
  Sender: FDA-Public Use
  Company Number: US-AMGEN INC.-USASP2020077697

PATIENT
  Age: 49 Year
  Sex: Male

DRUGS (1)
  1. AIMOVIG [Suspect]
     Active Substance: ERENUMAB-AOOE
     Indication: MIGRAINE PROPHYLAXIS
     Dosage: 140 MILLIGRAM, QMO
     Route: 065
     Dates: start: 20200203

REACTIONS (5)
  - Product dose omission [Unknown]
  - Product communication issue [Unknown]
  - Injection site haemorrhage [Not Recovered/Not Resolved]
  - Accidental exposure to product [Unknown]
  - Contusion [Unknown]

NARRATIVE: CASE EVENT DATE: 2020
